FAERS Safety Report 8521995-0 (Version None)
Quarter: 2012Q3

REPORT INFORMATION
  Report Type: 
  Country: None (occurrence: None)
  Receive Date: 20120719
  Receipt Date: 20120705
  Transmission Date: 20120928
  Serious: Yes (Other)
  Sender: FDA-Public Use
  Company Number: US-WATSON-2012-11924

PATIENT
  Age: 5 Year
  Sex: Female

DRUGS (2)
  1. LEVETIRACETAM [Suspect]
     Indication: ACCIDENTAL OVERDOSE
     Dosage: 4X THE RECOMMENDED DOSE
     Route: 065
  2. LEVETIRACETAM [Suspect]
     Indication: EPILEPSY

REACTIONS (2)
  - ACCIDENTAL OVERDOSE [None]
  - PRURITUS [None]
